FAERS Safety Report 11364684 (Version 1)
Quarter: 2015Q3

REPORT INFORMATION
  Report Type: Spontaneous
  Country: US (occurrence: None)
  Receive Date: 20150810
  Receipt Date: 20150810
  Transmission Date: 20151125
  Serious: Yes (Disabling)
  Sender: FDA-Public Use
  Company Number: None

PATIENT
  Age: 46 Year
  Sex: Male
  Weight: 81.65 kg

DRUGS (4)
  1. TYLENOL [Concomitant]
     Active Substance: ACETAMINOPHEN
  2. DRAMAMINE [Concomitant]
     Active Substance: DIMENHYDRINATE
  3. STOMACH ACID [Concomitant]
  4. VIAGRA [Suspect]
     Active Substance: SILDENAFIL CITRATE
     Indication: ERECTILE DYSFUNCTION
     Dosage: 1 PILL AS NEEDED
     Route: 048
     Dates: start: 20050801, end: 20060801

REACTIONS (3)
  - Sexual dysfunction [None]
  - Product label issue [None]
  - Peyronie^s disease [None]

NARRATIVE: CASE EVENT DATE: 20050801
